FAERS Safety Report 9339928 (Version 3)
Quarter: 2013Q3

REPORT INFORMATION
  Report Type: Spontaneous
  Country: US (occurrence: US)
  Receive Date: 20130610
  Receipt Date: 20130813
  Transmission Date: 20140515
  Serious: Yes (Other)
  Sender: FDA-Public Use
  Company Number: US-TEVA-410045USA

PATIENT
  Sex: Female

DRUGS (2)
  1. PARAGARD 380A [Suspect]
     Indication: CONTRACEPTION
     Route: 015
     Dates: start: 200807, end: 201102
  2. MIRENA [Suspect]
     Route: 015
     Dates: start: 201102, end: 201212

REACTIONS (12)
  - Bipolar I disorder [Unknown]
  - Pelvic inflammatory disease [Recovered/Resolved]
  - Pelvic infection [Unknown]
  - Alopecia [Unknown]
  - Body temperature increased [Unknown]
  - Dizziness [Unknown]
  - Premenstrual syndrome [Unknown]
  - Infection [Unknown]
  - Pain [Unknown]
  - Hypersensitivity [Unknown]
  - Confusional state [Unknown]
  - Depression [Unknown]
